FAERS Safety Report 4294494-2 (Version None)
Quarter: 2004Q1

REPORT INFORMATION
  Report Type: 
  Country: None (occurrence: None)
  Receive Date: 20040211
  Receipt Date: 20040122
  Transmission Date: 20041129
  Serious: Yes (Death)
  Sender: FDA-Public Use
  Company Number: US_030493865

PATIENT
  Age: 53 Year
  Sex: Female

DRUGS (9)
  1. ZYPREXA [Suspect]
     Indication: SCHIZOPHRENIA
     Dosage: 30 MG/DAY
     Dates: start: 20001208, end: 20021009
  2. BENADRYL [Concomitant]
  3. LAMICTAL [Concomitant]
  4. SYNTHROID [Concomitant]
  5. AVANDIA [Concomitant]
  6. PREVACID [Concomitant]
  7. ATENOLOL [Concomitant]
  8. CLARITIN-D [Concomitant]
  9. PROPRANOLOL [Concomitant]

REACTIONS (1)
  - OVERDOSE [None]
